FAERS Safety Report 9278512 (Version 4)
Quarter: 2013Q2

REPORT INFORMATION
  Report Type: Spontaneous
  Country: US (occurrence: US)
  Receive Date: 20130508
  Receipt Date: 20130617
  Transmission Date: 20140414
  Serious: No
  Sender: FDA-Public Use
  Company Number: US-009507513-1305USA003574

PATIENT
  Age: 57 Year
  Sex: Female
  Weight: 77.98 kg

DRUGS (1)
  1. CLARITIN-D-12 [Suspect]
     Indication: SEASONAL ALLERGY
     Dosage: UNK, UNKNOWN
     Route: 048
     Dates: start: 20130410, end: 20130412

REACTIONS (1)
  - Drug ineffective [Unknown]
